FAERS Safety Report 7509285-6 (Version None)
Quarter: 2011Q2

REPORT INFORMATION
  Report Type: 
  Country: None (occurrence: None)
  Receive Date: 20110527
  Receipt Date: 20110525
  Transmission Date: 20111010
  Serious: Yes (Disabling)
  Sender: FDA-Public Use
  Company Number: DE-ROCHE-778252

PATIENT
  Sex: Male

DRUGS (4)
  1. FLUOROURACIL [Suspect]
     Route: 042
     Dates: end: 20110408
  2. ASS 100 [Concomitant]
     Route: 048
  3. HERCEPTIN [Suspect]
     Dosage: 4 ADMINISTRATIONS GIVEN
     Route: 042
     Dates: start: 20110223, end: 20110426
  4. METO-SUCCINAT [Concomitant]
     Route: 048

REACTIONS (1)
  - RETINAL DETACHMENT [None]
